FAERS Safety Report 4334949-5 (Version None)
Quarter: 2004Q1

REPORT INFORMATION
  Report Type: 
  Country: None (occurrence: None)
  Receive Date: 20040329
  Receipt Date: 20040127
  Transmission Date: 20041129
  Serious: No
  Sender: FDA-Public Use
  Company Number: 04P-163-0248515-00

PATIENT
  Age: 54 Year
  Weight: 104.3273 kg

DRUGS (9)
  1. HUMIRA [Suspect]
     Indication: RHEUMATOID ARTHRITIS
     Dosage: 40 MG, 1 IN 2 WK, SUBCUTANEOUS
     Route: 058
     Dates: start: 20040123
  2. DICYCLOMINE HCL [Concomitant]
  3. ATENOLOL [Concomitant]
  4. ROFECOXIB [Concomitant]
  5. ACETAMINOPHEN W/ CODEINE [Concomitant]
  6. CONJUGATED ESTROGEN [Concomitant]
  7. MULTI-VITAMINS [Concomitant]
  8. ASCORBIC ACID [Concomitant]
  9. MONTELUKAST SODIUM [Concomitant]

REACTIONS (1)
  - INJECTION SITE BURNING [None]
